FAERS Safety Report 24335790 (Version 1)
Quarter: 2024Q3

REPORT INFORMATION
  Report Type: Other
  Country: IT (occurrence: IT)
  Receive Date: 20240919
  Receipt Date: 20240919
  Transmission Date: 20241017
  Serious: Yes (Hospitalization, Other)
  Sender: AUROBINDO
  Company Number: IT-AUROBINDO-AUR-APL-2014-00484

PATIENT
  Age: 40 Year
  Sex: Female

DRUGS (4)
  1. DELORAZEPAM [Suspect]
     Active Substance: DELORAZEPAM
     Indication: Product used for unknown indication
     Dosage: 100 MG,TOTAL,
     Route: 048
     Dates: start: 20131216, end: 20131216
  2. PAROXETINE [Suspect]
     Active Substance: PAROXETINE
     Indication: Product used for unknown indication
     Dosage: 1120 MILLIGRAM TOTAL
     Route: 048
     Dates: start: 20131216, end: 20131216
  3. VALPROIC ACID [Suspect]
     Active Substance: VALPROIC ACID
     Indication: Product used for unknown indication
     Dosage: 12500 MG,TOTAL,
     Route: 048
     Dates: start: 20131216, end: 20131216
  4. ABILIFY [Suspect]
     Active Substance: ARIPIPRAZOLE
     Indication: Product used for unknown indication
     Dosage: 60 MILLIGRAM TOTAL
     Route: 048
     Dates: start: 20131216, end: 20131216

REACTIONS (7)
  - Drug abuse [Recovering/Resolving]
  - Abdominal pain [Recovering/Resolving]
  - Incontinence [Recovering/Resolving]
  - Sopor [Recovering/Resolving]
  - Alcohol abuse [Recovering/Resolving]
  - Anal incontinence [Recovering/Resolving]
  - Overdose [Recovering/Resolving]

NARRATIVE: CASE EVENT DATE: 20131216
